FAERS Safety Report 9109376 (Version 3)
Quarter: 2013Q1

REPORT INFORMATION
  Report Type: Spontaneous
  Country: JP (occurrence: JP)
  Receive Date: 20130222
  Receipt Date: 20130313
  Transmission Date: 20140127
  Serious: Yes (Other)
  Sender: FDA-Public Use
  Company Number: JP-VERTEX PHARMACEUTICALS INC.-2012-026303

PATIENT
  Age: 57 Year
  Sex: Male

DRUGS (10)
  1. TELAVIC [Suspect]
     Indication: CHRONIC HEPATITIS C
     Dosage: 2250 MG, QD
     Route: 048
     Dates: start: 20121102, end: 20121105
  2. PEGINTRON [Suspect]
     Indication: CHRONIC HEPATITIS C
     Dosage: 90 ?G, QW
     Route: 058
     Dates: start: 20121102
  3. REBETOL [Suspect]
     Indication: CHRONIC HEPATITIS C
     Dosage: 600 MG, QD
     Route: 048
     Dates: start: 20121102, end: 20121121
  4. REBETOL [Suspect]
     Dosage: 400 MG, QD
     Route: 048
     Dates: start: 20121122, end: 20121128
  5. REBETOL [Suspect]
     Dosage: 200 MG, QD
     Route: 048
     Dates: start: 20121129
  6. NU-LOTAN [Suspect]
     Indication: ADVERSE REACTION
     Dosage: 25 MG, QD
     Route: 048
     Dates: start: 20121103, end: 20121112
  7. AMARYL [Concomitant]
     Dosage: 1 MG, QD
     Route: 048
  8. JANUVIA [Concomitant]
     Dosage: 50 MG, QD
     Route: 048
  9. DIOVAN [Concomitant]
     Dosage: 40 MG, QD
     Route: 048
     Dates: start: 20121113
  10. URSO [Concomitant]
     Dosage: 600 MG, QD
     Route: 048

REACTIONS (6)
  - Renal failure acute [Recovered/Resolved]
  - Anaemia [Not Recovered/Not Resolved]
  - Hypertension [Not Recovered/Not Resolved]
  - Blood creatinine increased [Not Recovered/Not Resolved]
  - Hyperuricaemia [Recovered/Resolved]
  - Rash [Recovered/Resolved]
